FAERS Safety Report 6539039-9 (Version None)
Quarter: 2010Q1

REPORT INFORMATION
  Report Type: 
  Country: None (occurrence: None)
  Receive Date: 20100112
  Receipt Date: 20091228
  Transmission Date: 20100710
  Serious: Yes (Other)
  Sender: FDA-Public Use
  Company Number: AUR-APL-2010-00076

PATIENT
  Sex: Male
  Weight: 1.54 kg

DRUGS (8)
  1. METFORMIN HCL [Suspect]
     Dosage: 3G, DAILY, TRANSPLACENT
     Route: 064
     Dates: end: 20090916
  2. TAHOR FILM-COATED TABLET 9ATORVASTATIN) [Suspect]
     Dosage: 80MG, DAILY, TRANSPLACENT
     Route: 064
     Dates: end: 20090916
  3. PLAVIX [Suspect]
     Dosage: 75MG - DAILY- TRANPLACENT
     Route: 064
     Dates: end: 20090916
  4. RAMIPRIL [Suspect]
     Dosage: 5MG - DAILY - TRANSPLACENT
     Route: 064
     Dates: end: 20090916
  5. HUMALOG [Suspect]
     Dosage: TRANSPLACENT
     Route: 064
  6. LANTUS [Suspect]
     Dosage: TRANSPLACENT
     Route: 064
  7. ALLOPURINOL [Suspect]
     Dosage: 200MG - DAILY - TRANSPLACENT
     Route: 064
  8. KARDEGIC [Concomitant]

REACTIONS (8)
  - FOETAL GROWTH RETARDATION [None]
  - HYPOGLYCAEMIA NEONATAL [None]
  - JAUNDICE NEONATAL [None]
  - MATERNAL DRUGS AFFECTING FOETUS [None]
  - NEONATAL RESPIRATORY DISTRESS SYNDROME [None]
  - PREMATURE BABY [None]
  - STRABISMUS [None]
  - ULTRASOUND ANTENATAL SCREEN ABNORMAL [None]
